FAERS Safety Report 25643084 (Version 1)
Quarter: 2025Q3

REPORT INFORMATION
  Report Type: Spontaneous
  Country: EU (occurrence: EU)
  Receive Date: 20250805
  Receipt Date: 20250805
  Transmission Date: 20251021
  Serious: Yes (Hospitalization)
  Sender: ACCORD
  Company Number: None

PATIENT
  Age: 72 Year
  Sex: Male
  Weight: 88 kg

DRUGS (2)
  1. CAPECITABINE [Suspect]
     Active Substance: CAPECITABINE
     Indication: Colon cancer
     Dates: start: 20250407, end: 20250419
  2. FOSFOMYCIN TROMETHAMINE [Concomitant]
     Active Substance: FOSFOMYCIN TROMETHAMINE
     Indication: Cystitis
     Dates: start: 20250418, end: 20250419

REACTIONS (7)
  - Paraesthesia [Recovered/Resolved]
  - Pain in jaw [Recovered/Resolved]
  - Epistaxis [Recovered/Resolved]
  - Constipation [Recovered/Resolved]
  - Urinary sediment [Unknown]
  - Cystitis [Unknown]
  - Blood urine present [Unknown]

NARRATIVE: CASE EVENT DATE: 20250408
